FAERS Safety Report 9290920 (Version 2)
Quarter: 2013Q3

REPORT INFORMATION
  Report Type: Spontaneous
  Country: US (occurrence: US)
  Receive Date: 20130515
  Receipt Date: 20130823
  Transmission Date: 20140515
  Serious: Yes (Hospitalization, Other)
  Sender: FDA-Public Use
  Company Number: US-AMGEN-USASP2013034066

PATIENT
  Age: 68 Year
  Sex: Female
  Weight: 110 kg

DRUGS (5)
  1. ENBREL [Suspect]
     Indication: PRODUCT USED FOR UNKNOWN INDICATION
     Dosage: UNK
     Route: 065
  2. CELEBREX [Suspect]
     Indication: ARTHRITIS
     Dosage: 200 MG, QD
     Route: 065
     Dates: start: 2000
  3. CELEBREX [Suspect]
     Indication: RHEUMATOID ARTHRITIS
  4. METHOTREXATE [Suspect]
     Indication: RHEUMATOID ARTHRITIS
     Dosage: 2 MG, QD
     Route: 065
  5. VITAMINS NOS [Concomitant]
     Indication: PAIN
     Dosage: UNK

REACTIONS (4)
  - Road traffic accident [Unknown]
  - Surgery [Unknown]
  - Drug ineffective [Unknown]
  - Nodule [Unknown]
